FAERS Safety Report 4571851-8 (Version None)
Quarter: 2005Q1

REPORT INFORMATION
  Report Type: 
  Country: None (occurrence: None)
  Receive Date: 20050207
  Receipt Date: 20050126
  Transmission Date: 20050727
  Serious: Yes (Other)
  Sender: FDA-Public Use
  Company Number: US-GLAXOSMITHKLINE-A0542377A

PATIENT
  Age: 76 Year
  Sex: Male
  Weight: 79.5 kg

DRUGS (5)
  1. NICODERM CQ [Suspect]
     Indication: SMOKING CESSATION THERAPY
     Dosage: 21MG PER DAY
     Route: 062
     Dates: start: 20040101
  2. NICORETTE [Suspect]
     Indication: SMOKING CESSATION THERAPY
     Route: 002
     Dates: start: 19800101, end: 19880101
  3. COMMIT [Suspect]
     Indication: SMOKING CESSATION THERAPY
     Route: 002
     Dates: start: 20050117
  4. FLURAZEPAM [Concomitant]
     Indication: DEPRESSION
     Route: 048
  5. LORAZEPAM [Concomitant]
     Route: 048

REACTIONS (6)
  - CONDITION AGGRAVATED [None]
  - DRUG ABUSER [None]
  - HERPES SIMPLEX [None]
  - INITIAL INSOMNIA [None]
  - PSORIASIS [None]
  - TOOTH DISORDER [None]
